FAERS Safety Report 18731834 (Version 50)
Quarter: 2024Q3

REPORT INFORMATION
  Report Type: Report from Study
  Country: CO (occurrence: CO)
  Receive Date: 20210112
  Receipt Date: 20240913
  Transmission Date: 20241017
  Serious: Yes (Other)
  Sender: TAKEDA
  Company Number: CO-TAKEDA-CO202027035

PATIENT
  Age: 38 Year
  Sex: Female
  Weight: 64.85 kg

DRUGS (8)
  1. VELAGLUCERASE ALFA [Suspect]
     Active Substance: VELAGLUCERASE ALFA
     Indication: Gaucher^s disease
     Dosage: 3600 INTERNATIONAL UNIT, Q2WEEKS
     Route: 042
     Dates: start: 20090801
  2. VELAGLUCERASE ALFA [Suspect]
     Active Substance: VELAGLUCERASE ALFA
     Dosage: 3600 INTERNATIONAL UNIT
     Route: 042
     Dates: start: 20230712
  3. VELAGLUCERASE ALFA [Suspect]
     Active Substance: VELAGLUCERASE ALFA
     Dosage: 3600 INTERNATIONAL UNIT
     Route: 042
  4. VELAGLUCERASE ALFA [Suspect]
     Active Substance: VELAGLUCERASE ALFA
     Dosage: 3600 INTERNATIONAL UNIT, Q2WEEKS
     Route: 042
  5. VELAGLUCERASE ALFA [Suspect]
     Active Substance: VELAGLUCERASE ALFA
     Dosage: 3600 INTERNATIONAL UNIT, 2/MONTH
     Route: 042
  6. VELAGLUCERASE ALFA [Suspect]
     Active Substance: VELAGLUCERASE ALFA
     Dosage: 3600 INTERNATIONAL UNIT, 2/MONTH
     Route: 042
  7. VELAGLUCERASE ALFA [Suspect]
     Active Substance: VELAGLUCERASE ALFA
     Dosage: 3600 INTERNATIONAL UNIT, 2/MONTH
     Route: 042
  8. LEVOTHYROXINE [Concomitant]
     Active Substance: LEVOTHYROXINE\LEVOTHYROXINE SODIUM
     Dosage: UNK
     Route: 065

REACTIONS (27)
  - COVID-19 [Recovered/Resolved]
  - Poor venous access [Recovered/Resolved]
  - Body height decreased [Unknown]
  - Insurance issue [Unknown]
  - Treatment noncompliance [Unknown]
  - Weight increased [Recovered/Resolved]
  - Herpes zoster [Recovered/Resolved]
  - Stress [Recovered/Resolved]
  - Ageusia [Recovered/Resolved]
  - Anosmia [Recovering/Resolving]
  - Weight decreased [Unknown]
  - Migraine [Recovered/Resolved]
  - Diarrhoea [Recovered/Resolved]
  - Gastrointestinal disorder [Recovered/Resolved]
  - Blood pressure increased [Unknown]
  - Feeling hot [Unknown]
  - Anaemia [Unknown]
  - Thyroid hormones increased [Unknown]
  - Flank pain [Not Recovered/Not Resolved]
  - Device infusion issue [Unknown]
  - Product distribution issue [Unknown]
  - Inappropriate schedule of product administration [Unknown]
  - Product dose omission issue [Unknown]
  - Product prescribing error [Unknown]
  - Incorrect dose administered [Unknown]
  - Dizziness [Unknown]
  - Fatigue [Unknown]

NARRATIVE: CASE EVENT DATE: 20200815
